FAERS Safety Report 20586168 (Version 2)
Quarter: 2022Q3

REPORT INFORMATION
  Report Type: Spontaneous
  Country: US (occurrence: US)
  Receive Date: 20220313
  Receipt Date: 20220718
  Transmission Date: 20221027
  Serious: No
  Sender: FDA-Public Use
  Company Number: US-BRISTOL-MYERS SQUIBB COMPANY-BMS-2022-035741

PATIENT
  Age: 37 Year
  Sex: Female

DRUGS (1)
  1. ORENCIA [Suspect]
     Active Substance: ABATACEPT
     Indication: Rheumatoid arthritis
     Dosage: BATCH NUMBER: ACB8313, EXPIRATION DATE: 30-SEP-2023
     Route: 058
     Dates: start: 20220214

REACTIONS (2)
  - Hypoglycaemia [Unknown]
  - Drug ineffective [Unknown]
